FAERS Safety Report 5142509-1 (Version None)
Quarter: 2006Q4

REPORT INFORMATION
  Report Type: 
  Country: None (occurrence: None)
  Receive Date: 20061102
  Receipt Date: 20061024
  Transmission Date: 20070319
  Serious: Yes (Other)
  Sender: FDA-Public Use
  Company Number: US-SANOFI-SYNTHELABO-A03200606435

PATIENT
  Age: 90 Year
  Sex: Male

DRUGS (6)
  1. ELAVIL [Concomitant]
     Dosage: UNK
     Route: 048
  2. MYSOLINE [Concomitant]
     Dosage: UNK
     Route: 048
  3. VICODIN [Concomitant]
     Dosage: UNK
     Route: 048
  4. RENAVITE [Concomitant]
     Dosage: UNK
     Route: 048
  5. PHOSLO [Concomitant]
     Dosage: UNK
     Route: 065
  6. AMBIEN [Suspect]
     Indication: INSOMNIA
     Dosage: 5 TO 10 MG
     Route: 048

REACTIONS (4)
  - DRUG INEFFECTIVE [None]
  - FALL [None]
  - SOMNOLENCE [None]
  - UPPER LIMB FRACTURE [None]
